FAERS Safety Report 8093170-8 (Version None)
Quarter: 2012Q1

REPORT INFORMATION
  Report Type: 
  Country: None (occurrence: None)
  Receive Date: 20120128
  Receipt Date: 20110930
  Transmission Date: 20120608
  Serious: Yes (Other)
  Sender: FDA-Public Use
  Company Number: US-ABBOTT-11P-163-0846334-00

PATIENT
  Sex: Female
  Weight: 142.56 kg

DRUGS (11)
  1. HUMIRA [Suspect]
     Indication: PSORIASIS
     Dosage: TOOK TWO SHOTS
  2. ASPIRIN [Concomitant]
     Indication: PROPHYLAXIS
     Dosage: DAILY
  3. HUMIRA [Suspect]
     Indication: PSORIASIS
     Dates: start: 20090701, end: 20100301
  4. STELARA [Concomitant]
     Indication: PRODUCT USED FOR UNKNOWN INDICATION
     Dates: start: 20101201
  5. HUMIRA [Suspect]
     Dates: end: 20101201
  6. FOLIC ACID [Concomitant]
     Indication: VITAMIN SUPPLEMENTATION
  7. LEXAPRO [Concomitant]
     Indication: STRESS
     Dates: end: 20100101
  8. TRIAMTERENE AND HYDROCHLOROTHIAZIDE [Concomitant]
     Indication: HYPERTENSION
  9. METHOTREXATE [Concomitant]
     Indication: PSORIASIS
     Dates: start: 20060501
  10. LOTREL [Concomitant]
     Indication: HYPERTENSION
  11. LEXAPRO [Concomitant]

REACTIONS (12)
  - INJECTION SITE PAIN [None]
  - SKIN HAEMORRHAGE [None]
  - LABORATORY TEST ABNORMAL [None]
  - DRUG EFFECT DECREASED [None]
  - STRESS [None]
  - INJECTION SITE HAEMATOMA [None]
  - DRUG INEFFECTIVE [None]
  - PSORIASIS [None]
  - BASAL CELL CARCINOMA [None]
  - DEVICE MALFUNCTION [None]
  - PHARYNGITIS [None]
  - SKIN EXFOLIATION [None]
